FAERS Safety Report 23972433 (Version 3)
Quarter: 2025Q2

REPORT INFORMATION
  Report Type: Spontaneous
  Country: US (occurrence: US)
  Receive Date: 20240613
  Receipt Date: 20250510
  Transmission Date: 20250717
  Serious: No
  Sender: SANOFI AVENTIS
  Company Number: US-SA-SAC20240607000691

PATIENT
  Age: 64 Year
  Sex: Male
  Weight: 87.08 kg

DRUGS (9)
  1. DUPIXENT [Suspect]
     Active Substance: DUPILUMAB
     Indication: Dermatitis atopic
     Dosage: 300 MG, QOW
     Route: 058
  2. DUPIXENT [Suspect]
     Active Substance: DUPILUMAB
     Indication: Rash
  3. DESONIDE [Concomitant]
     Active Substance: DESONIDE
  4. HYDROCORTISONE [Concomitant]
     Active Substance: HYDROCORTISONE
  5. TRIAMCINOLONE ACETONIDE [Concomitant]
     Active Substance: TRIAMCINOLONE ACETONIDE
  6. DICLOFENAC SODIUM [Concomitant]
     Active Substance: DICLOFENAC SODIUM
  7. ASPIRIN [Concomitant]
     Active Substance: ASPIRIN
  8. HYDROCHLOROTHIAZIDE [Concomitant]
     Active Substance: HYDROCHLOROTHIAZIDE
  9. LOSARTAN POTASSIUM [Concomitant]
     Active Substance: LOSARTAN POTASSIUM

REACTIONS (7)
  - Weight increased [Recovering/Resolving]
  - Myalgia [Recovering/Resolving]
  - Dermatitis atopic [Recovering/Resolving]
  - Rash [Unknown]
  - Erythema [Unknown]
  - Drug ineffective [Unknown]
  - Product use in unapproved indication [Unknown]
